FAERS Safety Report 4437062-1 (Version None)
Quarter: 2004Q3

REPORT INFORMATION
  Report Type: 
  Country: None (occurrence: None)
  Receive Date: 20040830
  Receipt Date: 20040817
  Transmission Date: 20050211
  Serious: Yes (Life-Threatening)
  Sender: FDA-Public Use
  Company Number: NA-GLAXOSMITHKLINE-B0342937A

PATIENT
  Age: 62 Year
  Sex: Female

DRUGS (1)
  1. CEFUROXIME AXETIL [Suspect]
     Route: 048
     Dates: start: 20040812

REACTIONS (4)
  - DIZZINESS [None]
  - DYSURIA [None]
  - HOT FLUSH [None]
  - PAIN [None]
